FAERS Safety Report 5506264-5 (Version None)
Quarter: 2007Q4

REPORT INFORMATION
  Report Type: 
  Country: None (occurrence: None)
  Receive Date: 20071105
  Receipt Date: 20071024
  Transmission Date: 20080405
  Serious: Yes (Other)
  Sender: FDA-Public Use
  Company Number: US-JNJFOC-20071006574

PATIENT
  Sex: Male
  Weight: 73.48 kg

DRUGS (6)
  1. REMICADE [Suspect]
     Route: 042
  2. REMICADE [Suspect]
     Indication: PSORIATIC ARTHROPATHY
     Route: 042
  3. PREDNISONE [Concomitant]
     Indication: PSORIATIC ARTHROPATHY
  4. ADVIL [Concomitant]
     Indication: PSORIATIC ARTHROPATHY
  5. KLONOPIN [Concomitant]
     Indication: ANXIETY
  6. ZIAC [Concomitant]
     Indication: BLOOD PRESSURE

REACTIONS (5)
  - DYSPNOEA [None]
  - GASTROOESOPHAGEAL REFLUX DISEASE [None]
  - LUPUS-LIKE SYNDROME [None]
  - OESOPHAGEAL HAEMORRHAGE [None]
  - VIRAL INFECTION [None]
